FAERS Safety Report 22625017 (Version 1)
Quarter: 2023Q2

REPORT INFORMATION
  Report Type: Spontaneous
  Country: US (occurrence: None)
  Receive Date: 20230616
  Receipt Date: 20230616
  Transmission Date: 20230721
  Serious: Yes (Hospitalization)
  Sender: FDA-Public Use
  Company Number: None

PATIENT
  Sex: Male

DRUGS (14)
  1. TACROLIMUS [Suspect]
     Active Substance: TACROLIMUS
     Indication: Liver transplant
     Dosage: FREQUENCY : TWICE A DAY;?
     Route: 048
     Dates: start: 20200205
  2. TACROLIMUS [Suspect]
     Active Substance: TACROLIMUS
     Dosage: FREQUENCY : TWICE A DAY;?
     Route: 048
  3. ACYCLOVIR [Concomitant]
     Active Substance: ACYCLOVIR
  4. AQUADEKS DRO [Concomitant]
  5. ASPIRIN LOW EC [Concomitant]
  6. BACTRIM DS [Concomitant]
     Active Substance: SULFAMETHOXAZOLE\TRIMETHOPRIM
  7. CELLCEPT [Concomitant]
     Active Substance: MYCOPHENOLATE MOFETIL
  8. ERGOCALCIFER [Concomitant]
  9. MAGNESIUM-OX [Concomitant]
  10. MELATONIN [Concomitant]
     Active Substance: MELATONIN
  11. MULTIPLE VIT [Concomitant]
  12. NYSTATIN [Concomitant]
     Active Substance: NYSTATIN
  13. PEPCID [Concomitant]
     Active Substance: FAMOTIDINE
  14. ZOFRAN [Concomitant]
     Active Substance: ONDANSETRON HYDROCHLORIDE

REACTIONS (2)
  - Infection [None]
  - Disease complication [None]
